FAERS Safety Report 21880663 (Version 1)
Quarter: 2023Q1

REPORT INFORMATION
  Report Type: Report from Study
  Country: US (occurrence: US)
  Receive Date: 20230118
  Receipt Date: 20230118
  Transmission Date: 20230417
  Serious: No
  Sender: FDA-Public Use
  Company Number: US-ABBVIE-4240953

PATIENT
  Sex: Female
  Weight: 89 kg

DRUGS (1)
  1. RINVOQ [Suspect]
     Active Substance: UPADACITINIB
     Indication: Colitis ulcerative
     Route: 058
     Dates: start: 20220914

REACTIONS (1)
  - Diarrhoea haemorrhagic [Recovered/Resolved]
